FAERS Safety Report 9252062 (Version 1)
Quarter: 2013Q1

REPORT INFORMATION
  Report Type: Spontaneous
  Country: US (occurrence: None)
  Receive Date: 20130305
  Receipt Date: 20130305
  Transmission Date: 20140127
  Serious: Yes (Other)
  Sender: FDA-Public Use
  Company Number: 163-21880-12071881

PATIENT
  Age: 89 Year
  Sex: Male

DRUGS (4)
  1. REVLIMID (LENALIDOMIDE) (CAPSULES) [Suspect]
     Indication: PLASMA CELL MYELOMA
     Dosage: 15 MG, QOD X21 DAYS, PO
     Dates: start: 20120613
  2. DEXAMETHASONE (DEXAMETHASONE) [Concomitant]
  3. FISH OIL (FISH OIL) [Concomitant]
  4. MULTIVITAMIN (MULTIVITAMINS) [Concomitant]

REACTIONS (2)
  - Pruritus [None]
  - Fatigue [None]
